FAERS Safety Report 10289855 (Version 3)
Quarter: 2014Q4

REPORT INFORMATION
  Report Type: Spontaneous
  Country: RU (occurrence: RU)
  Receive Date: 20140710
  Receipt Date: 20141015
  Transmission Date: 20150528
  Serious: Yes (Life-Threatening)
  Sender: FDA-Public Use
  Company Number: RU-TEVA-485997ISR

PATIENT
  Age: 54 Year
  Sex: Female
  Weight: 84 kg

DRUGS (3)
  1. GEMZAR [Concomitant]
     Active Substance: GEMCITABINE HYDROCHLORIDE
     Indication: BREAST CANCER
     Route: 042
     Dates: start: 20140521, end: 20140521
  2. EMESET [Concomitant]
     Indication: BREAST CANCER
     Route: 042
     Dates: start: 20140521, end: 20140521
  3. CISPLATIN-TEVA [Suspect]
     Active Substance: CISPLATIN
     Indication: BREAST CANCER
     Dosage: 1 MG/ML 100ML ONCE
     Route: 042
     Dates: start: 20140521

REACTIONS (6)
  - Acute kidney injury [Recovering/Resolving]
  - Nausea [Recovering/Resolving]
  - Toxicity to various agents [Unknown]
  - Deafness [Recovering/Resolving]
  - Asthenia [Recovering/Resolving]
  - Vomiting [Recovering/Resolving]

NARRATIVE: CASE EVENT DATE: 20140523
